FAERS Safety Report 4364442-5 (Version None)
Quarter: 2004Q2

REPORT INFORMATION
  Report Type: 
  Country: None (occurrence: None)
  Receive Date: 20040525
  Receipt Date: 20040521
  Transmission Date: 20050107
  Serious: Yes (Other)
  Sender: FDA-Public Use
  Company Number: US-GLAXOSMITHKLINE-A0511773A

PATIENT
  Age: 91 Year
  Sex: Male

DRUGS (2)
  1. DIGOXIN [Suspect]
     Indication: ILL-DEFINED DISORDER
  2. INDERAL [Concomitant]

REACTIONS (2)
  - HYPERTENSION [None]
  - TRANSIENT ISCHAEMIC ATTACK [None]
